FAERS Safety Report 14754570 (Version 4)
Quarter: 2019Q1

REPORT INFORMATION
  Report Type: Spontaneous
  Country: US (occurrence: US)
  Receive Date: 20180413
  Receipt Date: 20190328
  Transmission Date: 20190417
  Serious: No
  Sender: FDA-Public Use
  Company Number: US-ASTRAZENECA-2018SE32795

PATIENT
  Age: 46 Year
  Sex: Male
  Weight: 88.5 kg

DRUGS (5)
  1. METFORMIN [Concomitant]
     Active Substance: METFORMIN HYDROCHLORIDE
     Indication: TYPE 2 DIABETES MELLITUS
     Route: 048
  2. BYDUREON BCISE [Suspect]
     Active Substance: EXENATIDE
     Indication: TYPE 2 DIABETES MELLITUS
     Route: 058
     Dates: start: 20180304
  3. LISINOPRIL. [Suspect]
     Active Substance: LISINOPRIL
     Indication: BLOOD PRESSURE MEASUREMENT
     Route: 048
     Dates: start: 1998
  4. METFORMIN [Concomitant]
     Active Substance: METFORMIN HYDROCHLORIDE
     Indication: TYPE 2 DIABETES MELLITUS
     Route: 048
  5. PRAVASTATIN. [Concomitant]
     Active Substance: PRAVASTATIN
     Indication: BLOOD CHOLESTEROL
     Dosage: EVERY DAY
     Route: 048
     Dates: start: 2016

REACTIONS (14)
  - Blood cholesterol abnormal [Unknown]
  - Needle issue [Unknown]
  - Product label confusion [Unknown]
  - Device malfunction [Unknown]
  - Influenza [Not Recovered/Not Resolved]
  - Bronchitis [Unknown]
  - Type 2 diabetes mellitus [Not Recovered/Not Resolved]
  - Device leakage [Unknown]
  - Sinusitis [Unknown]
  - Blood glucose increased [Recovered/Resolved]
  - Injection site bruising [Unknown]
  - Injection site mass [Recovered/Resolved]
  - Injection site pain [Recovered/Resolved]
  - Wrong technique in device usage process [Unknown]

NARRATIVE: CASE EVENT DATE: 2011
